FAERS Safety Report 15883607 (Version 1)
Quarter: 2019Q1

REPORT INFORMATION
  Report Type: Spontaneous
  Country: PT (occurrence: PT)
  Receive Date: 20190129
  Receipt Date: 20190129
  Transmission Date: 20190417
  Serious: Yes (Hospitalization, Other)
  Sender: FDA-Public Use
  Company Number: PT-TEVA-2019-PT-1003166

PATIENT
  Age: 43 Year
  Sex: Male

DRUGS (6)
  1. TIAPRIDE [Concomitant]
     Active Substance: TIAPRIDE
  2. LORAZEPAM. [Concomitant]
     Active Substance: LORAZEPAM
  3. PRAVASTATIN. [Concomitant]
     Active Substance: PRAVASTATIN
  4. TOPIRAMATE. [Suspect]
     Active Substance: TOPIRAMATE
     Route: 048
  5. NALTREXONE [Concomitant]
     Active Substance: NALTREXONE
  6. FLUVOXAMINE [Concomitant]
     Active Substance: FLUVOXAMINE

REACTIONS (1)
  - Heat stroke [Recovering/Resolving]
